FAERS Safety Report 16161654 (Version 2)
Quarter: 2019Q2

REPORT INFORMATION
  Report Type: Spontaneous
  Country: AU (occurrence: AU)
  Receive Date: 20190405
  Receipt Date: 20190410
  Transmission Date: 20190711
  Serious: Yes (Death, Life-Threatening, Hospitalization, Other)
  Sender: FDA-Public Use
  Company Number: AU-SA-2019SA093110

PATIENT
  Age: 74 Year
  Sex: Male

DRUGS (7)
  1. ACETYLSALICYLIC ACID [Suspect]
     Active Substance: ASPIRIN
     Indication: ANTIPLATELET THERAPY
     Dosage: 100 MG, QD
  2. METHYLPREDNISOLONE. [Suspect]
     Active Substance: METHYLPREDNISOLONE
     Indication: AORTITIS
     Dosage: 750 MG
  3. PREDNISOLONE. [Suspect]
     Active Substance: PREDNISOLONE
     Indication: AORTITIS
  4. ENOXAPARIN SODIUM. [Suspect]
     Active Substance: ENOXAPARIN SODIUM
     Indication: THROMBOSIS PROPHYLAXIS
     Dosage: 40 MG
     Route: 058
  5. CYCLOPHOSPHAMIDE. [Suspect]
     Active Substance: CYCLOPHOSPHAMIDE
     Indication: AORTITIS
     Dosage: 1000 MG, 1X
     Route: 042
  6. PREDNISOLONE. [Suspect]
     Active Substance: PREDNISOLONE
     Indication: AORTITIS
     Dosage: 60 MG, QD
  7. CLOPIDOGREL BISULFATE. [Suspect]
     Active Substance: CLOPIDOGREL BISULFATE
     Indication: ANTIPLATELET THERAPY
     Dosage: 75 MG, QD

REACTIONS (8)
  - Aortic aneurysm [Recovered/Resolved]
  - Aortitis [Recovered/Resolved]
  - Coma [Fatal]
  - Drug ineffective [Unknown]
  - Circulatory collapse [Fatal]
  - Condition aggravated [Unknown]
  - Cerebral haemorrhage [Fatal]
  - Scedosporium infection [Recovered/Resolved]
